FAERS Safety Report 9892813 (Version 1)
Quarter: 2014Q1

REPORT INFORMATION
  Report Type: Report from Study
  Country: GB (occurrence: GB)
  Receive Date: 20140213
  Receipt Date: 20140213
  Transmission Date: 20141002
  Serious: Yes (Hospitalization)
  Sender: FDA-Public Use
  Company Number: GB-ROCHE-1347997

PATIENT
  Sex: Female
  Weight: 64 kg

DRUGS (2)
  1. RITUXIMAB [Suspect]
     Indication: RHEUMATOID ARTHRITIS
     Route: 065
     Dates: start: 20110504
  2. HYDROXYCHLOROQUINE [Concomitant]

REACTIONS (1)
  - Transitional cell carcinoma [Unknown]
